FAERS Safety Report 24951983 (Version 2)
Quarter: 2025Q1

REPORT INFORMATION
  Report Type: Report from Study
  Country: US (occurrence: US)
  Receive Date: 20250210
  Receipt Date: 20250213
  Transmission Date: 20250409
  Serious: Yes (Other)
  Sender: BRISTOL-MYERS SQUIBB COMPANY
  Company Number: US-BRISTOL-MYERS SQUIBB COMPANY-2025-016703

PATIENT
  Age: 63 Year
  Sex: Female

DRUGS (2)
  1. OPDIVO [Suspect]
     Active Substance: NIVOLUMAB
     Indication: Product used for unknown indication
     Dates: start: 2018, end: 2024
  2. OPDIVO [Suspect]
     Active Substance: NIVOLUMAB
     Dosage: DOSE: AT HIGHER DOSE OF 400 UNITS NOS
     Dates: start: 2024

REACTIONS (3)
  - Visual impairment [Unknown]
  - Papilloedema [Unknown]
  - Seizure [Unknown]

NARRATIVE: CASE EVENT DATE: 20240101
